FAERS Safety Report 19079173 (Version 1)
Quarter: 2021Q1

REPORT INFORMATION
  Report Type: Spontaneous
  Country: JP (occurrence: JP)
  Receive Date: 20210331
  Receipt Date: 20210331
  Transmission Date: 20210420
  Serious: Yes (Other)
  Sender: FDA-Public Use
  Company Number: JP-ANIPHARMA-2021-JP-000144

PATIENT
  Age: 69 Year
  Sex: Male

DRUGS (9)
  1. WARFARIN [Concomitant]
     Active Substance: WARFARIN
     Dosage: 2.5 MG QD / DOSE: 2 MG QOD
     Route: 048
  2. LANIRAPID [Concomitant]
     Active Substance: METILDIGOXIN
     Dosage: .05 MG QD
     Route: 048
  3. CASODEX [Suspect]
     Active Substance: BICALUTAMIDE
     Indication: PROSTATE CANCER
     Dosage: 80 MG QD
     Route: 048
     Dates: start: 20200620, end: 20200703
  4. LYRICA [Concomitant]
     Active Substance: PREGABALIN
     Dosage: 75 MG BID
     Route: 048
  5. REBAMIPIDE [Concomitant]
     Active Substance: REBAMIPIDE
     Dosage: 100 MG BID
     Route: 048
  6. FUROSEMIDE. [Concomitant]
     Active Substance: FUROSEMIDE
     Dosage: 20 MG QD
     Route: 048
  7. LORAMET [Suspect]
     Active Substance: LORMETAZEPAM
     Dosage: 1 MG QD
     Route: 048
  8. ATORVASTATIN [Concomitant]
     Active Substance: ATORVASTATIN
     Dosage: 10 MG QD
     Route: 048
  9. CELECOX [Concomitant]
     Active Substance: CELECOXIB
     Dosage: 100 MG BID
     Route: 048

REACTIONS (3)
  - Off label use [Recovered/Resolved]
  - Bradycardia [Recovered/Resolved]
  - Cardiac failure [Recovered/Resolved]

NARRATIVE: CASE EVENT DATE: 20200620
